APPROVED DRUG PRODUCT: STRIVERDI RESPIMAT
Active Ingredient: OLODATEROL HYDROCHLORIDE
Strength: EQ 0.0025MG BASE/INH
Dosage Form/Route: SPRAY, METERED;INHALATION
Application: N203108 | Product #001
Applicant: BOEHRINGER INGELHEIM PHARMACEUTICALS INC
Approved: Jul 31, 2014 | RLD: Yes | RS: Yes | Type: RX

PATENTS:
Patent 7727984 | Expires: Jan 19, 2027